FAERS Safety Report 4749589-3 (Version None)
Quarter: 2005Q3

REPORT INFORMATION
  Report Type: 
  Country: None (occurrence: None)
  Receive Date: 20050822
  Receipt Date: 20050816
  Transmission Date: 20060218
  Serious: Yes (Life-Threatening)
  Sender: FDA-Public Use
  Company Number: JP-GLAXOSMITHKLINE-B0391158A

PATIENT
  Sex: Female

DRUGS (5)
  1. MODACIN [Suspect]
     Indication: INFECTION
     Dosage: 1G PER DAY
     Route: 042
     Dates: start: 20050803, end: 20050806
  2. LASIX [Concomitant]
     Dosage: 40MG TWICE PER DAY
     Route: 048
  3. TANKARU [Concomitant]
     Dosage: 500MG THREE TIMES PER DAY
     Route: 048
  4. FRANDOL [Concomitant]
     Dosage: 20MG TWICE PER DAY
     Route: 048
  5. RENAGEL [Concomitant]
     Dosage: 250MG SIX TIMES PER DAY
     Route: 048

REACTIONS (1)
  - DEPRESSED LEVEL OF CONSCIOUSNESS [None]
